FAERS Safety Report 8032568-0 (Version None)
Quarter: 2012Q1

REPORT INFORMATION
  Report Type: 
  Country: None (occurrence: None)
  Receive Date: 20120110
  Receipt Date: 20111006
  Transmission Date: 20120608
  Serious: Yes (Other)
  Sender: FDA-Public Use
  Company Number: US-TYCO HEALTHCARE/MALLINCKRODT-T201101956

PATIENT
  Sex: Female

DRUGS (17)
  1. OPTIRAY 160 [Suspect]
     Indication: COMPUTERISED TOMOGRAM
     Dosage: 120 ML, SINGLE
     Route: 042
     Dates: start: 20111004, end: 20111004
  2. DILTIAZEM HCL [Concomitant]
     Indication: HYPERTENSION
     Dosage: UNK
  3. PLAVIX [Concomitant]
     Indication: PERIPHERAL VASCULAR DISORDER
     Dosage: UNK
  4. SPIRIVA [Concomitant]
     Indication: CHRONIC OBSTRUCTIVE PULMONARY DISEASE
     Dosage: UNK
  5. OMEPRAZOLE [Concomitant]
     Indication: GASTROOESOPHAGEAL REFLUX DISEASE
     Dosage: UNK
  6. FUROSEMIDE [Concomitant]
     Indication: CARDIOMYOPATHY
     Dosage: UNK
  7. METFORMIN HCL [Concomitant]
     Indication: DIABETES MELLITUS
     Dosage: UNK
  8. JANUVIA [Concomitant]
     Indication: DIABETES MELLITUS
     Dosage: UNK
  9. VITAMIN D [Concomitant]
     Dosage: UNK
  10. ISORDIL [Concomitant]
     Indication: CORONARY ARTERY DISEASE
     Dosage: UNK
  11. VENTOLIN [Concomitant]
     Indication: CHRONIC OBSTRUCTIVE PULMONARY DISEASE
     Dosage: UNK
  12. FLEXERIL [Concomitant]
     Indication: MYALGIA
     Dosage: UNK
  13. GLIPIZIDE [Concomitant]
     Indication: DIABETES MELLITUS
     Dosage: UNK
  14. MUCINEX [Concomitant]
     Indication: CHRONIC OBSTRUCTIVE PULMONARY DISEASE
     Dosage: UNK
  15. CHEMOTHERAPEUTICS NOS [Concomitant]
     Indication: LUNG NEOPLASM MALIGNANT
     Dosage: UNK
  16. POTASSIUM CHLORIDE [Concomitant]
     Dosage: UNK
  17. SIMVASTATIN [Concomitant]
     Indication: BLOOD CHOLESTEROL INCREASED
     Dosage: UNK

REACTIONS (3)
  - MALAISE [None]
  - SYNCOPE [None]
  - DYSPNOEA [None]
